FAERS Safety Report 21247870 (Version 1)
Quarter: 2022Q3

REPORT INFORMATION
  Report Type: Spontaneous
  Country: CN (occurrence: CN)
  Receive Date: 20220824
  Receipt Date: 20220824
  Transmission Date: 20221027
  Serious: Yes (Hospitalization, Other)
  Sender: FDA-Public Use
  Company Number: CN-GLAXOSMITHKLINE-CN2022APC120902

PATIENT

DRUGS (1)
  1. LAMICTAL [Suspect]
     Active Substance: LAMOTRIGINE
     Indication: Anxiety
     Dosage: 25 MG, QD
     Route: 048
     Dates: start: 20220718, end: 20220806

REACTIONS (8)
  - Drug hypersensitivity [Unknown]
  - Erythema [Unknown]
  - Pruritus [Unknown]
  - Pyrexia [Unknown]
  - Swelling face [Unknown]
  - Macule [Unknown]
  - Scratch [Unknown]
  - Rash [Unknown]

NARRATIVE: CASE EVENT DATE: 20220806
